FAERS Safety Report 7170053-9 (Version None)
Quarter: 2010Q4

REPORT INFORMATION
  Report Type: 
  Country: None (occurrence: None)
  Receive Date: 20101203
  Receipt Date: 20101118
  Transmission Date: 20110411
  Serious: Yes (Death, Hospitalization)
  Sender: FDA-Public Use
  Company Number: OU-10-034-1

PATIENT
  Age: 83 Year
  Sex: Male

DRUGS (5)
  1. CEFOXITIN [Suspect]
     Indication: INFECTION
     Dosage: 2G, BID, IV
     Route: 042
  2. LEVOFLOXACIN [Suspect]
     Indication: INFECTION
     Dosage: 0.2 G, BID, IV
     Route: 042
  3. MOXIFLOXACIN [Suspect]
     Indication: INFECTION
     Dosage: 400 MG PER DAY; ORAL
     Route: 048
  4. PENICILLIN SODIUM [Suspect]
     Indication: INFECTION
     Dosage: 6.4 MIOU; TID; IV
     Route: 042
  5. CEFOSELIS (NO PREF. NAME) [Suspect]
     Indication: INFECTION
     Dosage: 1.0 G; BID; IV
     Route: 042

REACTIONS (9)
  - COMA [None]
  - CONVULSION [None]
  - COUGH [None]
  - LISTLESS [None]
  - METABOLIC ACIDOSIS [None]
  - OEDEMA PERIPHERAL [None]
  - RALES [None]
  - RENAL FAILURE [None]
  - TETANY [None]
